FAERS Safety Report 5142266-9 (Version None)
Quarter: 2006Q4

REPORT INFORMATION
  Report Type: 
  Country: None (occurrence: None)
  Receive Date: 20061027
  Receipt Date: 20061016
  Transmission Date: 20070319
  Serious: Yes (Life-Threatening, Hospitalization, Other)
  Sender: FDA-Public Use
  Company Number: 2006127343

PATIENT
  Sex: Female
  Weight: 90.2658 kg

DRUGS (8)
  1. LYRICA [Suspect]
     Indication: POLYNEUROPATHY
     Dates: start: 20060101, end: 20060101
  2. NEURONTIN [Suspect]
     Indication: PAIN
  3. HYDROCODONE (HYDROCODONE) [Concomitant]
  4. SOMA [Concomitant]
  5. MOTRIN [Concomitant]
  6. CYMBALTA [Concomitant]
  7. ATIVAN [Concomitant]
  8. TRIAZOLAM [Concomitant]

REACTIONS (6)
  - CARDIAC ENZYMES INCREASED [None]
  - DRUG INEFFECTIVE [None]
  - DYSARTHRIA [None]
  - ECONOMIC PROBLEM [None]
  - LOSS OF CONSCIOUSNESS [None]
  - PAIN [None]
